FAERS Safety Report 4583831-7 (Version None)
Quarter: 2005Q1

REPORT INFORMATION
  Report Type: 
  Country: None (occurrence: None)
  Receive Date: 20050125
  Receipt Date: 20041012
  Transmission Date: 20050727
  Serious: No
  Sender: FDA-Public Use
  Company Number: USA041080895

PATIENT
  Age: 85 Year
  Sex: Female
  Weight: 48 kg

DRUGS (2)
  1. FORTEO [Suspect]
     Indication: OSTEOPOROSIS
     Dosage: 20 UG DAY
     Dates: start: 20040501
  2. CALCIUM CARBONATE [Concomitant]

REACTIONS (5)
  - ARTHRALGIA [None]
  - HAND DEFORMITY [None]
  - NAUSEA [None]
  - NECK PAIN [None]
  - URINARY TRACT INFECTION [None]
